FAERS Safety Report 9674954 (Version 1)
Quarter: 2013Q4

REPORT INFORMATION
  Report Type: Spontaneous
  Country: US (occurrence: None)
  Receive Date: 20131106
  Receipt Date: 20131106
  Transmission Date: 20140711
  Serious: Yes (Life-Threatening, Hospitalization)
  Sender: FDA-Public Use
  Company Number: None

PATIENT
  Age: 26 Year
  Sex: Female

DRUGS (1)
  1. OPANA ER [Suspect]
     Indication: DRUG THERAPY
     Dosage: DRUG WAS NOT PRESCRIBED
     Dates: start: 20131006, end: 20131006

REACTIONS (1)
  - Thrombotic thrombocytopenic purpura [None]
